FAERS Safety Report 7246734-5 (Version None)
Quarter: 2011Q1

REPORT INFORMATION
  Report Type: 
  Country: None (occurrence: None)
  Receive Date: 20110127
  Receipt Date: 20101011
  Transmission Date: 20110831
  Serious: Yes (Other)
  Sender: FDA-Public Use
  Company Number: NL-AMGEN-NLDSP2011003826

PATIENT
  Age: 70 Year
  Sex: Female

DRUGS (6)
  1. IBUPROFEN [Concomitant]
     Dosage: UNK
  2. OMEPRAZOLE [Concomitant]
     Dosage: UNK
  3. METHOTREXATE [Concomitant]
     Dosage: UNK
  4. ENBREL [Suspect]
     Indication: RHEUMATOID ARTHRITIS
     Dosage: 50 MG, WEEKLY
     Dates: start: 20100927
  5. CALCIUM WITH VITAMIN D [Concomitant]
     Dosage: UNK
  6. FOLIC ACID [Concomitant]
     Dosage: UNK

REACTIONS (7)
  - INJECTION SITE ERYTHEMA [None]
  - DRY THROAT [None]
  - INJECTION SITE SWELLING [None]
  - RHEUMATOID ARTHRITIS [None]
  - CONDITION AGGRAVATED [None]
  - RHINORRHOEA [None]
  - COUGH [None]
